FAERS Safety Report 12743834 (Version 2)
Quarter: 2017Q2

REPORT INFORMATION
  Report Type: Report from Study
  Country: US (occurrence: US)
  Receive Date: 20160914
  Receipt Date: 20170614
  Transmission Date: 20170830
  Serious: Yes (Other)
  Sender: FDA-Public Use
  Company Number: US-PFIZER INC-2016419600

PATIENT

DRUGS (4)
  1. METHOTREXATE SODIUM. [Suspect]
     Active Substance: METHOTREXATE SODIUM
     Indication: OSTEOSARCOMA
     Dosage: 12 G/M^2 , CYCLIC (HIGH-DOSE, OVER 4 H)
  2. DOXORUBICIN [Concomitant]
     Active Substance: DOXORUBICIN
     Indication: OSTEOSARCOMA
     Dosage: 37.5 MG/M^2 PER DAY ON DAYS 1 AND 2 (ON WEEKS 1 AND 6)
  3. LEUCOVORIN /00566701/ [Concomitant]
     Active Substance: LEUCOVORIN
     Indication: PROPHYLAXIS
     Dosage: 15 MG/M^2 STARTING 24-48 H FROM METHOTREXATE INFUSION
  4. CISPLATIN. [Concomitant]
     Active Substance: CISPLATIN
     Indication: OSTEOSARCOMA
     Dosage: 120 MG/M^2 (4 H OF 60 MG/M2 IN COG SITES;CONTINUOUS 72 H IN OTHER SITES) ON DAY 1,2(ON WEEKS 1,6)
     Route: 042

REACTIONS (1)
  - Bone infarction [Unknown]
